FAERS Safety Report 6787743-X (Version None)
Quarter: 2010Q2

REPORT INFORMATION
  Report Type: 
  Country: None (occurrence: None)
  Receive Date: 20100623
  Receipt Date: 20070816
  Transmission Date: 20101027
  Serious: No
  Sender: FDA-Public Use
  Company Number: US-PFIZER INC-2007044121

PATIENT
  Sex: Female
  Weight: 61 kg

DRUGS (5)
  1. SUTENT [Suspect]
     Indication: GASTROINTESTINAL STROMAL TUMOUR
     Route: 048
     Dates: start: 20070424
  2. VERAPAMIL [Concomitant]
  3. LISINOPRIL [Concomitant]
  4. PRILOSEC [Concomitant]
  5. CARAFATE [Concomitant]

REACTIONS (2)
  - GLOSSODYNIA [None]
  - TONGUE DISCOLOURATION [None]
